FAERS Safety Report 9542091 (Version 3)
Quarter: 2013Q4

REPORT INFORMATION
  Report Type: Spontaneous
  Country: US (occurrence: US)
  Receive Date: 20130923
  Receipt Date: 20131025
  Transmission Date: 20140711
  Serious: Yes (Hospitalization)
  Sender: FDA-Public Use
  Company Number: US-ASTELLAS-2013US007330

PATIENT
  Age: 68 Year
  Sex: Male

DRUGS (1)
  1. PROGRAF [Suspect]
     Indication: HEART TRANSPLANT
     Dosage: 0.5 MG, BID
     Route: 048
     Dates: start: 20130426, end: 20130718

REACTIONS (5)
  - Hospitalisation [Unknown]
  - Spinal column stenosis [Recovering/Resolving]
  - Muscular weakness [Unknown]
  - Paraesthesia [Unknown]
  - Hypoaesthesia [Unknown]
